FAERS Safety Report 18603908 (Version 1)
Quarter: 2020Q4

REPORT INFORMATION
  Report Type: Spontaneous
  Country: US (occurrence: US)
  Receive Date: 20201210
  Receipt Date: 20201210
  Transmission Date: 20210114
  Serious: Yes (Hospitalization)
  Sender: FDA-Public Use
  Company Number: None

PATIENT
  Age: 64 Year
  Sex: Female

DRUGS (23)
  1. CELEBREX [Concomitant]
     Active Substance: CELECOXIB
  2. METHOTREXATE. [Concomitant]
     Active Substance: METHOTREXATE
  3. DULERA [Concomitant]
     Active Substance: FORMOTEROL FUMARATE DIHYDRATE\MOMETASONE FUROATE
  4. MULTIVITAMIN ADLT 50+ [Concomitant]
  5. ASPIRIN EC [Concomitant]
     Active Substance: ASPIRIN
  6. FASLODEX [Concomitant]
     Active Substance: FULVESTRANT
  7. METOPROL TAR [Concomitant]
  8. SYNTHROID [Concomitant]
     Active Substance: LEVOTHYROXINE SODIUM
  9. TYLENOL/COD [Concomitant]
  10. XANAX [Concomitant]
     Active Substance: ALPRAZOLAM
  11. POT  CHLORIDE ER [Concomitant]
  12. ZOLOFT [Concomitant]
     Active Substance: SERTRALINE HYDROCHLORIDE
  13. IRON [Concomitant]
     Active Substance: IRON
  14. VERZENIO [Suspect]
     Active Substance: ABEMACICLIB
     Indication: BREAST CANCER FEMALE
     Route: 048
     Dates: start: 20190905
  15. ACIPHEX [Concomitant]
     Active Substance: RABEPRAZOLE SODIUM
  16. BOTOX [Concomitant]
     Active Substance: ONABOTULINUMTOXINA
  17. CLARITIN [Concomitant]
     Active Substance: LORATADINE
  18. VITAMIN D3 [Concomitant]
     Active Substance: CHOLECALCIFEROL
  19. FIBERCON [Concomitant]
     Active Substance: CALCIUM POLYCARBOPHIL
  20. FOLIC ACID. [Concomitant]
     Active Substance: FOLIC ACID
  21. NIFEDIPINE. [Concomitant]
     Active Substance: NIFEDIPINE
  22. CALCIUM/ D [Concomitant]
  23. DIGEST II [Concomitant]

REACTIONS (2)
  - Abdominal pain [None]
  - Vomiting [None]

NARRATIVE: CASE EVENT DATE: 20201110
